FAERS Safety Report 18335875 (Version 1)
Quarter: 2020Q4

REPORT INFORMATION
  Report Type: Spontaneous
  Country: US (occurrence: US)
  Receive Date: 20201001
  Receipt Date: 20201001
  Transmission Date: 20210113
  Serious: No
  Sender: FDA-Public Use
  Company Number: US-GLAXOSMITHKLINE-US2020190117

PATIENT
  Sex: Male
  Weight: 59 kg

DRUGS (1)
  1. EQUATE NICOTINE [Suspect]
     Active Substance: NICOTINE
     Indication: PRODUCT USED FOR UNKNOWN INDICATION
     Dosage: UNK

REACTIONS (5)
  - Hypersensitivity [Recovering/Resolving]
  - Application site pruritus [Unknown]
  - Application site erythema [Unknown]
  - Expired product administered [Unknown]
  - Application site swelling [Unknown]
